FAERS Safety Report 7301953-4 (Version None)
Quarter: 2011Q1

REPORT INFORMATION
  Report Type: 
  Country: None (occurrence: None)
  Receive Date: 20110218
  Receipt Date: 20110214
  Transmission Date: 20110831
  Serious: Yes (Death, Hospitalization)
  Sender: FDA-Public Use
  Company Number: NL-ROCHE-760099

PATIENT
  Sex: Female

DRUGS (8)
  1. HYDROCHLOROTHIAZIDE [Concomitant]
     Dates: start: 20060101
  2. CAPECITABINE [Suspect]
     Route: 048
     Dates: start: 20080225
  3. FUCIDINE CAP [Concomitant]
     Dates: start: 20080925
  4. DURAGESIC-100 [Concomitant]
     Dates: start: 20080301
  5. BEVACIZUMAB [Suspect]
     Route: 042
     Dates: start: 20080225
  6. PARACETAMOL [Concomitant]
     Dates: start: 20080214
  7. OXAZEPAM [Concomitant]
     Dates: start: 20080407
  8. ORAMORPH SR [Concomitant]
     Dates: start: 20080616

REACTIONS (3)
  - GENERAL PHYSICAL HEALTH DETERIORATION [None]
  - WOUND TREATMENT [None]
  - SOCIAL PROBLEM [None]
